FAERS Safety Report 8286075 (Version 3)
Quarter: 2013Q2

REPORT INFORMATION
  Report Type: Spontaneous
  Country: US (occurrence: US)
  Receive Date: 20111213
  Receipt Date: 20130517
  Transmission Date: 20140414
  Serious: Yes (Other)
  Sender: FDA-Public Use
  Company Number: US-ROCHE-1021223

PATIENT
  Age: 24 Year
  Sex: Male
  Weight: 86.26 kg

DRUGS (4)
  1. ACCUTANE [Suspect]
     Indication: ACNE
     Dosage: 20-80 MG
     Route: 065
     Dates: start: 20001116, end: 20010312
  2. ALLEGRA [Concomitant]
  3. TYLENOL [Concomitant]
  4. IBUPROFEN [Concomitant]

REACTIONS (10)
  - Crohn^s disease [Unknown]
  - Inflammatory bowel disease [Unknown]
  - Colon injury [Unknown]
  - Depression [Unknown]
  - Injury [Unknown]
  - Intestinal obstruction [Unknown]
  - Perirectal abscess [Unknown]
  - Anal fistula [Unknown]
  - Pyoderma gangrenosum [Unknown]
  - Back pain [Recovered/Resolved]
